FAERS Safety Report 8422981-1 (Version None)
Quarter: 2012Q2

REPORT INFORMATION
  Report Type: 
  Country: None (occurrence: None)
  Receive Date: 20120608
  Receipt Date: 20120529
  Transmission Date: 20120825
  Serious: Yes (Other)
  Sender: FDA-Public Use
  Company Number: US-ABBOTT-12P-163-0940525-00

PATIENT
  Age: 61 Year
  Sex: Female

DRUGS (8)
  1. XANAX [Concomitant]
     Indication: ANXIETY
     Route: 048
  2. ALBUTEROL [Concomitant]
     Indication: ASTHMA
  3. HUMIRA [Suspect]
     Indication: PSORIASIS
     Dates: start: 20100101
  4. VISTARIL [Concomitant]
     Indication: HYPERTENSION
     Dosage: DAILY DOSE: 25MG
     Route: 048
  5. OTC ZANTAC [Concomitant]
     Indication: GASTRIC DISORDER
     Route: 048
  6. SINGULAIR [Concomitant]
     Indication: ASTHMA
     Dosage: AT BEDTIME
     Route: 048
  7. ASPIRIN [Concomitant]
     Indication: CARDIAC DISORDER
     Dosage: WEEKLY
     Route: 048
  8. NEBULIZER [Concomitant]
     Indication: ASTHMA

REACTIONS (5)
  - CHRONIC OBSTRUCTIVE PULMONARY DISEASE [None]
  - PSORIASIS [None]
  - INJECTION SITE PAIN [None]
  - INJECTION SITE NODULE [None]
  - DRUG DOSE OMISSION [None]
